FAERS Safety Report 21940774 (Version 1)
Quarter: 2023Q1

REPORT INFORMATION
  Report Type: Report from Study
  Country: US (occurrence: US)
  Receive Date: 20230201
  Receipt Date: 20230201
  Transmission Date: 20230418
  Serious: No
  Sender: FDA-Public Use
  Company Number: US-EXELIXIS-CABO-22052535

PATIENT
  Age: 55 Year
  Sex: Male

DRUGS (3)
  1. CABOMETYX [Suspect]
     Active Substance: CABOZANTINIB S-MALATE
     Indication: Product used for unknown indication
     Dosage: 60 MG, QD
     Dates: start: 20220408, end: 202205
  2. CABOMETYX [Suspect]
     Active Substance: CABOZANTINIB S-MALATE
     Dosage: 60 MG TABLET IN HALF, QD
     Dates: start: 202205, end: 20220509
  3. ELIQUIS [Concomitant]
     Active Substance: APIXABAN

REACTIONS (9)
  - Oral discomfort [Recovering/Resolving]
  - Parosmia [Recovering/Resolving]
  - Burning sensation [Recovering/Resolving]
  - Skin ulcer [Not Recovered/Not Resolved]
  - Odynophagia [Unknown]
  - Oral pain [Unknown]
  - Taste disorder [Recovering/Resolving]
  - Dyspepsia [Unknown]
  - Wrong technique in product usage process [Unknown]

NARRATIVE: CASE EVENT DATE: 20220501
